FAERS Safety Report 15275811 (Version 1)
Quarter: 2018Q3

REPORT INFORMATION
  Report Type: Spontaneous
  Country: US (occurrence: US)
  Receive Date: 20180727
  Receipt Date: 20180727
  Transmission Date: 20181010
  Serious: Yes (Hospitalization)
  Sender: FDA-Public Use
  Company Number: None

PATIENT
  Age: 63 Year
  Sex: Female

DRUGS (1)
  1. TRACLEER [Suspect]
     Active Substance: BOSENTAN
     Route: 048
     Dates: start: 20180706

REACTIONS (8)
  - Staphylococcal infection [None]
  - Fluid overload [None]
  - Device related infection [None]
  - Acute kidney injury [None]
  - Bacteraemia [None]
  - Thrombocytopenia [None]
  - Hypotension [None]
  - Escherichia urinary tract infection [None]

NARRATIVE: CASE EVENT DATE: 20180707
